FAERS Safety Report 22015582 (Version 1)
Quarter: 2023Q1

REPORT INFORMATION
  Report Type: Spontaneous
  Country: CA (occurrence: CA)
  Receive Date: 20230221
  Receipt Date: 20230221
  Transmission Date: 20230418
  Serious: Yes (Hospitalization, Other)
  Sender: FDA-Public Use
  Company Number: CA-BAYER-2023A020680

PATIENT
  Age: 34 Year
  Sex: Female

DRUGS (6)
  1. YASMIN [Suspect]
     Active Substance: DROSPIRENONE\ETHINYL ESTRADIOL
     Indication: Contraception
     Dosage: 1 DF, QD
     Route: 048
     Dates: start: 20081203, end: 20110526
  2. RATIO-LENOLTEC NO 2 [Concomitant]
     Dosage: 15 MG
     Dates: start: 20110905
  3. ACETAMINOPHEN\CAFFEINE\CODEINE PHOSPHATE [Concomitant]
     Active Substance: ACETAMINOPHEN\CAFFEINE\CODEINE PHOSPHATE
     Dosage: 30 MG
     Dates: start: 20110906
  4. PANTOPRAZOLE [Concomitant]
     Active Substance: PANTOPRAZOLE
     Dosage: 40 MG
     Dates: start: 20110906
  5. NAPROXEN [Concomitant]
     Active Substance: NAPROXEN
     Dosage: 500 MG
     Dates: start: 20110906
  6. PROTRIN DF [Concomitant]
     Dosage: UNK
     Dates: start: 20110906

REACTIONS (4)
  - Cerebral venous thrombosis [Unknown]
  - Headache [Unknown]
  - Photosensitivity reaction [Unknown]
  - Nausea [Unknown]

NARRATIVE: CASE EVENT DATE: 20110907
